FAERS Safety Report 7312987-8 (Version None)
Quarter: 2011Q1

REPORT INFORMATION
  Report Type: 
  Country: None (occurrence: None)
  Receive Date: 20110224
  Receipt Date: 20110211
  Transmission Date: 20110831
  Serious: Yes (Hospitalization)
  Sender: FDA-Public Use
  Company Number: IT-MYLANLABS-2011S1002946

PATIENT
  Age: 57 Year
  Sex: Male

DRUGS (9)
  1. INTERFERON ALFA [Concomitant]
     Indication: PRODUCT USED FOR UNKNOWN INDICATION
  2. CIPROFLOXACIN [Suspect]
     Indication: EPIDIDYMITIS
     Route: 048
     Dates: start: 20101218, end: 20101224
  3. APROVEL [Concomitant]
     Indication: PRODUCT USED FOR UNKNOWN INDICATION
  4. LAMIVUDINE(PEPFAR) [Concomitant]
     Indication: PRODUCT USED FOR UNKNOWN INDICATION
  5. RIBAVIRINA [Concomitant]
     Indication: PRODUCT USED FOR UNKNOWN INDICATION
     Dates: start: 20101103, end: 20101117
  6. AZATHIOPRINE [Concomitant]
     Indication: LIVER TRANSPLANT
  7. HYALGAN [Concomitant]
     Indication: ARTHRALGIA
     Dates: start: 20101105, end: 20101105
  8. CICLOSPORIN [Concomitant]
     Indication: PRODUCT USED FOR UNKNOWN INDICATION
  9. INSULIN [Concomitant]
     Indication: PRODUCT USED FOR UNKNOWN INDICATION

REACTIONS (2)
  - ARTHRITIS [None]
  - ERYTHEMA [None]
